FAERS Safety Report 7657511-5 (Version None)
Quarter: 2011Q3

REPORT INFORMATION
  Report Type: 
  Country: None (occurrence: None)
  Receive Date: 20110804
  Receipt Date: 20110722
  Transmission Date: 20111222
  Serious: Yes (Hospitalization, Other)
  Sender: FDA-Public Use
  Company Number: US-ALLERGAN-1017039US

PATIENT
  Age: 69 Year
  Sex: Male

DRUGS (10)
  1. SYSTANE [Concomitant]
     Indication: DRY EYE
     Dosage: 1 GTT, BID
     Dates: start: 20050101
  2. ASCRIPTIN                          /00058201/ [Concomitant]
     Indication: CARDIAC DISORDER
     Dosage: 325 MG, QD
     Dates: start: 20050101, end: 20100304
  3. TOPROL-XL [Concomitant]
     Indication: HYPERTENSION
     Dosage: 100 MG, QD
  4. DIALON T [Concomitant]
     Indication: EPILEPSY
     Dosage: 100 MG, QOD
  5. UNKNOWN ALLERGAN OPHTHALMIC PRODUCT [Suspect]
     Indication: DRY EYE
  6. LUPRON [Concomitant]
     Indication: NEOPLASM MALIGNANT
  7. REFRESH PLUS [Suspect]
     Indication: DRY EYE
     Dosage: 1 GTT, BID
     Dates: start: 20050101
  8. ZETIA [Concomitant]
     Indication: BLOOD CHOLESTEROL
     Dosage: 10 MG, QD
     Dates: start: 20050101
  9. CRESTOR [Concomitant]
     Indication: BLOOD CHOLESTEROL
     Dosage: 20 MG, QD
  10. NITROGLYCERIN [Concomitant]
     Indication: CARDIAC DISORDER
     Dosage: 4 MG, QD

REACTIONS (2)
  - CEREBROVASCULAR ACCIDENT [None]
  - PROSTATE CANCER [None]
